FAERS Safety Report 26074919 (Version 1)
Quarter: 2025Q4

REPORT INFORMATION
  Report Type: Report from Study
  Country: US (occurrence: US)
  Receive Date: 20251121
  Receipt Date: 20251121
  Transmission Date: 20260118
  Serious: Yes (Other)
  Sender: ALEXION PHARMACEUTICALS
  Company Number: US-AstraZeneca-CH-00994317A

PATIENT
  Sex: Female

DRUGS (1)
  1. DAPAGLIFLOZIN [Suspect]
     Active Substance: DAPAGLIFLOZIN
     Dosage: UNK
     Route: 065

REACTIONS (14)
  - Rash [Unknown]
  - Swelling [Unknown]
  - Constipation [Unknown]
  - Paraesthesia [Unknown]
  - Pruritus [Unknown]
  - Product dose omission issue [Unknown]
  - Hypersensitivity [Unknown]
  - Sleep disorder [Unknown]
  - Pain [Unknown]
  - Adverse event [Unknown]
  - Pustule [Unknown]
  - Urinary tract infection [Unknown]
  - Scratch [Unknown]
  - Neoplasm malignant [Unknown]
